FAERS Safety Report 23475500 (Version 1)
Quarter: 2024Q1

REPORT INFORMATION
  Report Type: Spontaneous
  Country: JP (occurrence: JP)
  Receive Date: 20240204
  Receipt Date: 20240204
  Transmission Date: 20240410
  Serious: No
  Sender: FDA-Public Use
  Company Number: JP-TAKEDA-2023TJP000640

PATIENT
  Age: 55 Year
  Sex: Male

DRUGS (2)
  1. CABOMETYX [Suspect]
     Active Substance: CABOZANTINIB S-MALATE
     Indication: Hepatocellular carcinoma
     Dosage: 60 MG, QD
     Route: 048
     Dates: start: 20221019
  2. CABOMETYX [Suspect]
     Active Substance: CABOZANTINIB S-MALATE
     Dosage: 40 MG, QD
     Route: 048
     Dates: start: 202212

REACTIONS (6)
  - Malaise [Recovered/Resolved]
  - Hair colour changes [Unknown]
  - Alopecia [Recovered/Resolved]
  - Palmar-plantar erythrodysaesthesia syndrome [Recovered/Resolved]
  - Alpha 1 foetoprotein increased [Recovered/Resolved]
  - Protein induced by vitamin K absence or antagonist II increased [Recovered/Resolved]

NARRATIVE: CASE EVENT DATE: 20221201
